APPROVED DRUG PRODUCT: PACLITAXEL
Active Ingredient: PACLITAXEL
Strength: 6MG/ML
Dosage Form/Route: INJECTABLE;INJECTION
Application: A216874 | Product #001 | TE Code: AP
Applicant: ALEMBIC PHARMACEUTICALS LTD
Approved: Oct 20, 2022 | RLD: No | RS: No | Type: RX